FAERS Safety Report 19103268 (Version 1)
Quarter: 2021Q2

REPORT INFORMATION
  Report Type: Spontaneous
  Country: US (occurrence: US)
  Receive Date: 20210407
  Receipt Date: 20210407
  Transmission Date: 20210717
  Serious: Yes (Other)
  Sender: FDA-Public Use
  Company Number: US-ELI_LILLY_AND_COMPANY-US202104001021

PATIENT
  Sex: Female

DRUGS (1)
  1. FORTEO [Suspect]
     Active Substance: TERIPARATIDE
     Indication: OSTEOPOROSIS
     Dosage: 20 UG, UNKNOWN
     Route: 058
     Dates: end: 2007

REACTIONS (9)
  - Upper limb fracture [Unknown]
  - Wrist fracture [Unknown]
  - Dizziness [Unknown]
  - Bone disorder [Not Recovered/Not Resolved]
  - Osteonecrosis [Not Recovered/Not Resolved]
  - Hip fracture [Unknown]
  - Hand fracture [Unknown]
  - Nerve injury [Unknown]
  - Thrombosis [Unknown]
